FAERS Safety Report 17253185 (Version 1)
Quarter: 2020Q1

REPORT INFORMATION
  Report Type: Spontaneous
  Country: US (occurrence: US)
  Receive Date: 20200109
  Receipt Date: 20200109
  Transmission Date: 20200409
  Serious: No
  Sender: FDA-Public Use
  Company Number: US-SA-2020SA005664

PATIENT
  Age: 59 Year
  Sex: Male

DRUGS (2)
  1. LOVENOX [Concomitant]
     Active Substance: ENOXAPARIN SODIUM
     Dosage: UNK UNK, UNK
     Route: 065
  2. CABLIVI [Suspect]
     Active Substance: CAPLACIZUMAB-YHDP
     Indication: THROMBOTIC MICROANGIOPATHY
     Dosage: 11 MG, QD
     Route: 058
     Dates: start: 20191227

REACTIONS (3)
  - Constipation [Recovered/Resolved]
  - Skin discolouration [Unknown]
  - Oedema peripheral [Unknown]
